FAERS Safety Report 4551268-2 (Version None)
Quarter: 2005Q1

REPORT INFORMATION
  Report Type: 
  Country: None (occurrence: None)
  Receive Date: 20050110
  Receipt Date: 20050104
  Transmission Date: 20050727
  Serious: Yes (Hospitalization)
  Sender: FDA-Public Use
  Company Number: K200500003

PATIENT
  Age: 72 Year
  Sex: Male

DRUGS (7)
  1. ALTACE [Suspect]
     Dosage: 10 MG, QD, ORAL
     Route: 048
  2. AMILORIDE HCL [Suspect]
     Dosage: 10 MG, QD, ORAL
     Route: 048
  3. WARFARIN SODIUM [Concomitant]
  4. DIGOXIN [Concomitant]
  5. BISOPROLOL FUMARATE [Concomitant]
  6. PRAVASTATIN [Concomitant]
  7. FUROSEMIDE [Concomitant]

REACTIONS (6)
  - BLOOD CREATINE INCREASED [None]
  - BLOOD SODIUM DECREASED [None]
  - BLOOD UREA INCREASED [None]
  - DEHYDRATION [None]
  - HYPERKALAEMIA [None]
  - HYPOTENSION [None]
